FAERS Safety Report 7780701-8 (Version None)
Quarter: 2011Q3

REPORT INFORMATION
  Report Type: 
  Country: None (occurrence: None)
  Receive Date: 20110927
  Receipt Date: 20110404
  Transmission Date: 20111222
  Serious: No
  Sender: FDA-Public Use
  Company Number: US-BRISTOL-MYERS SQUIBB COMPANY-15652829

PATIENT
  Age: 53 Year
  Sex: Female
  Weight: 104 kg

DRUGS (5)
  1. TRAMADOL HCL [Suspect]
  2. AVAPRO [Suspect]
  3. FLEXERIL [Suspect]
  4. HYDROCHLOROTHIAZIDE [Suspect]
     Dosage: CAPS
  5. JANUMET [Concomitant]

REACTIONS (2)
  - DRY MOUTH [None]
  - COUGH [None]
